FAERS Safety Report 25304994 (Version 2)
Quarter: 2025Q3

REPORT INFORMATION
  Report Type: Report from Study
  Country: CA (occurrence: CA)
  Receive Date: 20250513
  Receipt Date: 20250826
  Transmission Date: 20251021
  Serious: Yes (Hospitalization, Other)
  Sender: ABBVIE
  Company Number: CA-ABBVIE-6274635

PATIENT
  Age: 64 Year
  Sex: Female
  Weight: 47.1 kg

DRUGS (1)
  1. SKYRIZI [Suspect]
     Active Substance: RISANKIZUMAB-RZAA
     Indication: Crohn^s disease
     Route: 058

REACTIONS (7)
  - Intestinal resection [Recovering/Resolving]
  - Diarrhoea [Unknown]
  - Abdominal pain [Unknown]
  - Scar [Unknown]
  - Arthralgia [Unknown]
  - Myalgia [Unknown]
  - Epigastric discomfort [Unknown]

NARRATIVE: CASE EVENT DATE: 20250101
